FAERS Safety Report 6687205-4 (Version None)
Quarter: 2010Q2

REPORT INFORMATION
  Report Type: 
  Country: None (occurrence: None)
  Receive Date: 20100419
  Receipt Date: 20100407
  Transmission Date: 20101027
  Serious: Yes (Death, Other)
  Sender: FDA-Public Use
  Company Number: JP-PFIZER INC-2010034319

PATIENT
  Age: 76 Year
  Sex: Male

DRUGS (1)
  1. ZYVOX [Suspect]
     Dosage: 1200 MG/DAY
     Route: 042
     Dates: start: 20100302

REACTIONS (2)
  - DEATH [None]
  - HYPONATRAEMIA [None]
